FAERS Safety Report 22049723 (Version 1)
Quarter: 2023Q1

REPORT INFORMATION
  Report Type: Spontaneous
  Country: US (occurrence: None)
  Receive Date: 20230301
  Receipt Date: 20230301
  Transmission Date: 20230417
  Serious: Yes (Other)
  Sender: FDA-Public Use
  Company Number: 2023A044837

PATIENT
  Sex: Female
  Weight: 77.1 kg

DRUGS (1)
  1. BYDUREON BCISE [Suspect]
     Active Substance: EXENATIDE
     Indication: Type 2 diabetes mellitus
     Dosage: STARTED ABOUT 2 1/2 YEARS
     Route: 058

REACTIONS (5)
  - Breast cancer [Unknown]
  - Nausea [Not Recovered/Not Resolved]
  - Abdominal discomfort [Not Recovered/Not Resolved]
  - Injection site mass [Not Recovered/Not Resolved]
  - Visual impairment [Not Recovered/Not Resolved]
